FAERS Safety Report 17389829 (Version 1)
Quarter: 2020Q1

REPORT INFORMATION
  Report Type: Report from Study
  Country: None (occurrence: IE)
  Receive Date: 20200207
  Receipt Date: 20200207
  Transmission Date: 20200409
  Serious: Yes (Other)
  Sender: FDA-Public Use
  Company Number: IE-ABBVIE-20K-229-3262736-00

PATIENT
  Age: 51 Year
  Sex: Male

DRUGS (1)
  1. HUMIRA [Suspect]
     Active Substance: ADALIMUMAB
     Indication: PSORIASIS
     Route: 058
     Dates: start: 20190315

REACTIONS (3)
  - Device issue [Unknown]
  - Psoriasis [Recovering/Resolving]
  - Nail avulsion [Recovering/Resolving]

NARRATIVE: CASE EVENT DATE: 20191211
